FAERS Safety Report 21649750 (Version 1)
Quarter: 2022Q4

REPORT INFORMATION
  Report Type: Spontaneous
  Country: US (occurrence: US)
  Receive Date: 20221128
  Receipt Date: 20221128
  Transmission Date: 20230113
  Serious: Yes (Hospitalization)
  Sender: FDA-Public Use
  Company Number: US-SA-SAC20221128000147

PATIENT
  Age: 63 Year
  Sex: Female

DRUGS (15)
  1. DUPIXENT [Suspect]
     Active Substance: DUPILUMAB
     Indication: Asthma
     Dosage: 300MG EVERY FOURTEEN DAYS
     Route: 058
     Dates: start: 20210602
  2. ALBUTEROL SULFATE [Concomitant]
     Active Substance: ALBUTEROL SULFATE
  3. ATROVENT HFA [Concomitant]
     Active Substance: IPRATROPIUM BROMIDE
  4. AZELASTINE [Concomitant]
     Active Substance: AZELASTINE
  5. BREO ELLIPTA [Concomitant]
     Active Substance: FLUTICASONE FUROATE\VILANTEROL TRIFENATATE
  6. ACETAMINOPHEN\HYDROCODONE [Concomitant]
     Active Substance: ACETAMINOPHEN\HYDROCODONE
  7. ELIQUIS [Concomitant]
     Active Substance: APIXABAN
  8. FLOVENT HFA [Concomitant]
     Active Substance: FLUTICASONE PROPIONATE
  9. FUROSEMIDE [Concomitant]
     Active Substance: FUROSEMIDE
  10. NOVOLOG [Concomitant]
     Active Substance: INSULIN ASPART
  11. PANTOPRAZOLE [Concomitant]
     Active Substance: PANTOPRAZOLE
  12. PREDNISONE [Concomitant]
     Active Substance: PREDNISONE
  13. VERAPAMIL [Concomitant]
     Active Substance: VERAPAMIL HYDROCHLORIDE
  14. LEVOTHYROXINE [Concomitant]
     Active Substance: LEVOTHYROXINE
  15. OLMESARTAN MEDOXOMIL [Concomitant]
     Active Substance: OLMESARTAN MEDOXOMIL

REACTIONS (2)
  - COVID-19 [Not Recovered/Not Resolved]
  - Drug ineffective [Unknown]

NARRATIVE: CASE EVENT DATE: 20221101
